FAERS Safety Report 5197406-2 (Version None)
Quarter: 2007Q1

REPORT INFORMATION
  Report Type: 
  Country: None (occurrence: None)
  Receive Date: 20070103
  Receipt Date: 20061227
  Transmission Date: 20070707
  Serious: Yes (Death)
  Sender: FDA-Public Use
  Company Number: GB-SANOFI-SYNTHELABO-F01200602508

PATIENT
  Sex: Female
  Weight: 48 kg

DRUGS (6)
  1. FLUOROURACIL [Suspect]
     Dosage: 600 MG BOLUS FOLLOWED BY 3600 MG INFUSION DAYS 1 AND 2
     Route: 041
     Dates: start: 20061117, end: 20061118
  2. FOLINIC ACID [Suspect]
     Route: 041
  3. OXALIPLATIN [Suspect]
     Indication: COLORECTAL CANCER METASTATIC
     Route: 041
     Dates: start: 20061117, end: 20061117
  4. ACETAMINOPHEN [Concomitant]
     Route: 048
     Dates: start: 20060101, end: 20061129
  5. DICLOFENAC SODIUM [Concomitant]
     Route: 048
     Dates: start: 20060101, end: 20061124
  6. FENTANYL [Concomitant]
     Route: 062
     Dates: start: 20060101, end: 20061130

REACTIONS (5)
  - BRONCHOPNEUMONIA [None]
  - INTESTINAL PERFORATION [None]
  - NEUTROPENIA [None]
  - PELVIC ABSCESS [None]
  - POST PROCEDURAL COMPLICATION [None]
